FAERS Safety Report 21902598 (Version 2)
Quarter: 2023Q1

REPORT INFORMATION
  Report Type: Report from Study
  Country: JP (occurrence: JP)
  Receive Date: 20230124
  Receipt Date: 20230213
  Transmission Date: 20230417
  Serious: Yes (Hospitalization)
  Sender: FDA-Public Use
  Company Number: JP-GEHPL-2023JSU000329AA

PATIENT
  Age: 87 Year
  Sex: Male
  Weight: 51 kg

DRUGS (3)
  1. VISIPAQUE [Suspect]
     Active Substance: IODIXANOL
     Indication: Endoscopic retrograde cholangiopancreatography
     Dosage: UNK UNK, SINGLE
     Route: 042
     Dates: start: 20170324, end: 20170324
  2. VISIPAQUE [Suspect]
     Active Substance: IODIXANOL
     Indication: Bile duct cancer
  3. ASPIRIN [Concomitant]
     Active Substance: ASPIRIN
     Dosage: UNK
     Route: 048

REACTIONS (1)
  - Pancreatitis [Recovered/Resolved]

NARRATIVE: CASE EVENT DATE: 20170324
